FAERS Safety Report 20925220 (Version 1)
Quarter: 2022Q2

REPORT INFORMATION
  Report Type: Spontaneous
  Country: US (occurrence: US)
  Receive Date: 20220607
  Receipt Date: 20220607
  Transmission Date: 20220721
  Serious: No
  Sender: FDA-Public Use
  Company Number: US-ORGANON-O2205USA002528

PATIENT
  Sex: Male

DRUGS (1)
  1. REMERON SOLTAB [Suspect]
     Active Substance: MIRTAZAPINE
     Dosage: UNK; PLACE TABLETS
     Route: 048
     Dates: start: 202204, end: 2022

REACTIONS (4)
  - Oral mucosal blistering [Not Recovered/Not Resolved]
  - Wound secretion [Not Recovered/Not Resolved]
  - Blister rupture [Not Recovered/Not Resolved]
  - Product use in unapproved indication [Unknown]

NARRATIVE: CASE EVENT DATE: 20220101
